FAERS Safety Report 8330243-6 (Version None)
Quarter: 2012Q2

REPORT INFORMATION
  Report Type: 
  Country: None (occurrence: None)
  Receive Date: 20120502
  Receipt Date: 20120425
  Transmission Date: 20120825
  Serious: Yes (Other)
  Sender: FDA-Public Use
  Company Number: JP-VERTEX PHARMACEUTICALS INC.-AE-2012-006053

PATIENT
  Age: 44 Year
  Sex: Male

DRUGS (8)
  1. TELAVIC (TELAPREVIR) [Suspect]
     Route: 048
     Dates: start: 20120224, end: 20120406
  2. RIBAVIRIN [Concomitant]
     Indication: HEPATITIS C
     Route: 048
     Dates: start: 20120113, end: 20120223
  3. RIBAVIRIN [Concomitant]
     Route: 048
     Dates: start: 20120323
  4. PEGINTERFERON ALFA-2B [Concomitant]
     Indication: HEPATITIS C
     Route: 051
     Dates: start: 20120113
  5. LOXOPROFEN [Concomitant]
     Route: 048
     Dates: start: 20120113
  6. TELAVIC (TELAPREVIR) [Suspect]
     Indication: HEPATITIS C
     Route: 048
     Dates: start: 20120113, end: 20120223
  7. RIBAVIRIN [Concomitant]
     Route: 048
     Dates: start: 20120224, end: 20120322
  8. PEGINTERFERON ALFA-2B [Concomitant]
     Route: 051
     Dates: end: 20120405

REACTIONS (1)
  - WHITE BLOOD CELL COUNT DECREASED [None]
